FAERS Safety Report 21898402 (Version 1)
Quarter: 2023Q1

REPORT INFORMATION
  Report Type: Spontaneous
  Country: AT (occurrence: AT)
  Receive Date: 20230123
  Receipt Date: 20230123
  Transmission Date: 20230417
  Serious: Yes (Hospitalization, Other)
  Sender: FDA-Public Use
  Company Number: None

PATIENT
  Age: 60 Year
  Sex: Female

DRUGS (2)
  1. ACETAMINOPHEN [Suspect]
     Active Substance: ACETAMINOPHEN
     Indication: Pain
     Dosage: ACCORDING TO SMPC AND RECOMMENDATION FOR USE
     Route: 065
     Dates: start: 20221117, end: 20221117
  2. METAMIZOLE SODIUM [Suspect]
     Active Substance: METAMIZOLE SODIUM
     Indication: Pain
     Dosage: ACCORDING TO SMPC AND RECOMMENDATION FOR USE
     Route: 065
     Dates: start: 20221117, end: 20221117

REACTIONS (6)
  - Circulatory collapse [None]
  - Paraesthesia [None]
  - Dry mouth [None]
  - Pruritus [None]
  - Type IV hypersensitivity reaction [None]
  - Anaphylactic shock [None]

NARRATIVE: CASE EVENT DATE: 20221117
